FAERS Safety Report 8485420-0 (Version None)
Quarter: 2012Q3

REPORT INFORMATION
  Report Type: 
  Country: None (occurrence: None)
  Receive Date: 20120703
  Receipt Date: 20120628
  Transmission Date: 20120928
  Serious: Yes (Other)
  Sender: FDA-Public Use
  Company Number: PHEH2012US010656

PATIENT
  Sex: Male

DRUGS (2)
  1. BYSTOLIC [Concomitant]
     Dosage: UNK UKN, UNK
  2. DIOVAN [Suspect]
     Dosage: UNK UKN, UNK

REACTIONS (4)
  - SOMNOLENCE [None]
  - HIP FRACTURE [None]
  - TREMOR [None]
  - FALL [None]
